FAERS Safety Report 11659961 (Version 1)
Quarter: 2015Q4

REPORT INFORMATION
  Report Type: Spontaneous
  Country: US (occurrence: None)
  Receive Date: 20151023
  Receipt Date: 20151023
  Transmission Date: 20160304
  Serious: Yes (Disabling)
  Sender: FDA-Public Use
  Company Number: None

PATIENT
  Age: 59 Year
  Sex: Female

DRUGS (2)
  1. TRAZODONE [Suspect]
     Active Substance: TRAZODONE HYDROCHLORIDE
     Indication: DEPRESSION
     Route: 048
     Dates: start: 20150123, end: 20151022
  2. TRAZODONE [Suspect]
     Active Substance: TRAZODONE HYDROCHLORIDE
     Indication: SLEEP DISORDER
     Route: 048
     Dates: start: 20150123, end: 20151022

REACTIONS (6)
  - Rash generalised [None]
  - Alopecia [None]
  - Skin discolouration [None]
  - Dry skin [None]
  - Urticaria [None]
  - Skin exfoliation [None]

NARRATIVE: CASE EVENT DATE: 20150319
